FAERS Safety Report 16743924 (Version 1)
Quarter: 2019Q3

REPORT INFORMATION
  Report Type: Spontaneous
  Country: HR (occurrence: HR)
  Receive Date: 20190827
  Receipt Date: 20190827
  Transmission Date: 20191005
  Serious: Yes (Hospitalization, Other)
  Sender: FDA-Public Use
  Company Number: HR-MICRO LABS LIMITED-ML2019-02026

PATIENT
  Age: 88 Year
  Sex: Female

DRUGS (1)
  1. TRAMADOL/PARACETAMOL [Suspect]
     Active Substance: ACETAMINOPHEN\TRAMADOL

REACTIONS (2)
  - Stevens-Johnson syndrome [Unknown]
  - Pemphigoid [Unknown]
